FAERS Safety Report 26098830 (Version 1)
Quarter: 2025Q4

REPORT INFORMATION
  Report Type: Spontaneous
  Country: EU (occurrence: EU)
  Receive Date: 20251127
  Receipt Date: 20251127
  Transmission Date: 20260118
  Serious: Yes (Other)
  Sender: ALKEM
  Company Number: None

PATIENT
  Age: 53 Year
  Sex: Male

DRUGS (6)
  1. MYCOPHENOLATE MOFETIL [Suspect]
     Active Substance: MYCOPHENOLATE MOFETIL
     Indication: Autoimmune hepatitis
     Dosage: 500 MILLIGRAM, BID (EVERY 12 HOURS)
     Route: 065
  2. PREDNISONE [Suspect]
     Active Substance: PREDNISONE
     Indication: Autoimmune hepatitis
     Dosage: 20 MILLIGRAM
     Route: 065
  3. FLUVASTATIN [Concomitant]
     Active Substance: FLUVASTATIN SODIUM
     Indication: Autoimmune hepatitis
     Dosage: 20 MILLIGRAM, QD (EVERY 1 DAY)
     Route: 065
  4. OMEPRAZOLE [Concomitant]
     Active Substance: OMEPRAZOLE
     Indication: Autoimmune hepatitis
     Dosage: 20 MILLIGRAM
     Route: 065
  5. URSODIOL [Concomitant]
     Active Substance: URSODIOL
     Indication: Autoimmune hepatitis
     Dosage: 450 MILLIGRAM, BID (EVERY 12 HOUR)
     Route: 065
  6. Vitamin D, Calcium [Concomitant]
     Indication: Product used for unknown indication
     Dosage: UNK
     Route: 065

REACTIONS (5)
  - Trichophytosis [Recovered/Resolved]
  - Onychomycosis [Recovered/Resolved]
  - Tinea cruris [Recovered/Resolved]
  - Tinea capitis [Recovered/Resolved]
  - Dermatophytosis of nail [Recovered/Resolved]
